FAERS Safety Report 7864840-9 (Version None)
Quarter: 2011Q4

REPORT INFORMATION
  Report Type: 
  Country: None (occurrence: None)
  Receive Date: 20111028
  Receipt Date: 20100902
  Transmission Date: 20120403
  Serious: No
  Sender: FDA-Public Use
  Company Number: US-GLAXOSMITHKLINE-A0879243A

PATIENT
  Age: 73 Year
  Sex: Male

DRUGS (6)
  1. PROSCAR [Concomitant]
  2. TERAZOSIN HCL [Concomitant]
  3. ASPIRIN [Concomitant]
  4. ADVAIR DISKUS 100/50 [Suspect]
     Indication: RESPIRATORY TRACT CONGESTION
     Dosage: 1PUFF TWICE PER DAY
     Route: 055
     Dates: start: 20100830
  5. AMLODIPINE [Concomitant]
  6. LISINOPRIL [Concomitant]

REACTIONS (4)
  - GASTROOESOPHAGEAL REFLUX DISEASE [None]
  - DYSPNOEA [None]
  - CHEST DISCOMFORT [None]
  - PRODUCT QUALITY ISSUE [None]
